FAERS Safety Report 15759824 (Version 1)
Quarter: 2018Q4

REPORT INFORMATION
  Report Type: Report from Study
  Country: US (occurrence: US)
  Receive Date: 20181226
  Receipt Date: 20181226
  Transmission Date: 20190205
  Serious: No
  Sender: FDA-Public Use
  Company Number: PHEH2018US054308

PATIENT
  Sex: Female

DRUGS (2)
  1. VOLTAREN [Suspect]
     Active Substance: DICLOFENAC SODIUM
     Indication: PRODUCT USED FOR UNKNOWN INDICATION
     Route: 065
  2. HUMIRA [Suspect]
     Active Substance: ADALIMUMAB
     Indication: RHEUMATOID ARTHRITIS
     Dosage: UNK (40MG/0.4ML)
     Route: 058
     Dates: start: 20180907

REACTIONS (11)
  - Musculoskeletal stiffness [Unknown]
  - Arthralgia [Unknown]
  - Hepatic enzyme abnormal [Recovered/Resolved]
  - Sinus congestion [Unknown]
  - Pain in extremity [Unknown]
  - Joint stiffness [Unknown]
  - Drug ineffective [Unknown]
  - Joint swelling [Unknown]
  - Musculoskeletal stiffness [Recovered/Resolved]
  - Peripheral swelling [Unknown]
  - Sinus pain [Unknown]

NARRATIVE: CASE EVENT DATE: 2018
